FAERS Safety Report 19390669 (Version 1)
Quarter: 2021Q2

REPORT INFORMATION
  Report Type: Spontaneous
  Country: US (occurrence: US)
  Receive Date: 20210608
  Receipt Date: 20210608
  Transmission Date: 20210717
  Serious: Yes (Life-Threatening, Other)
  Sender: FDA-Public Use
  Company Number: US-BAYER-2021-151796

PATIENT
  Age: 25 Year
  Sex: Female

DRUGS (2)
  1. PARACETAMOL [Suspect]
     Active Substance: ACETAMINOPHEN
     Dosage: UNK
  2. QUETIAPINE. [Concomitant]
     Active Substance: QUETIAPINE
     Dosage: 150 MG/KG. OVER 60 MINUTES

REACTIONS (3)
  - Intentional overdose [None]
  - Suicide attempt [None]
  - Maternal exposure during pregnancy [None]
